FAERS Safety Report 20977017 (Version 3)
Quarter: 2022Q2

REPORT INFORMATION
  Report Type: Spontaneous
  Country: CH (occurrence: CH)
  Receive Date: 20220617
  Receipt Date: 20220628
  Transmission Date: 20220721
  Serious: Yes (Other)
  Sender: FDA-Public Use
  Company Number: CH-AMERICAN REGENT INC-2022001708

PATIENT
  Sex: Female
  Weight: 66 kg

DRUGS (1)
  1. FERINJECT [Suspect]
     Active Substance: FERRIC CARBOXYMALTOSE
     Indication: Iron deficiency anaemia
     Dosage: 500 MG/10 ML IN TOTAL (500 MG, 1 IN 1 TOTAL)
     Dates: start: 20220406, end: 20220406

REACTIONS (3)
  - Skin discolouration [Not Recovered/Not Resolved]
  - Skin lesion [Unknown]
  - Pruritus [Unknown]

NARRATIVE: CASE EVENT DATE: 20220101
